FAERS Safety Report 16894298 (Version 1)
Quarter: 2019Q4

REPORT INFORMATION
  Report Type: Spontaneous
  Country: US (occurrence: US)
  Receive Date: 20190813
  Receipt Date: 20190813
  Transmission Date: 20200122
  Serious: No
  Sender: FDA-Public Use
  Company Number: None

PATIENT
  Age: 40 Year
  Sex: Female

DRUGS (8)
  1. IBUPROFEN. [Concomitant]
     Active Substance: IBUPROFEN
  2. MODAFINIL. [Concomitant]
     Active Substance: MODAFINIL
  3. OXYBUTYNIN. [Concomitant]
     Active Substance: OXYBUTYNIN CHLORIDE
  4. GABAPENTIN. [Concomitant]
     Active Substance: GABAPENTIN
  5. ETODOLAC. [Concomitant]
     Active Substance: ETODOLAC
  6. CARBAMAZEPIN [Concomitant]
     Active Substance: CARBAMAZEPINE
  7. VIT D [Concomitant]
     Active Substance: VITAMIN D NOS
  8. DALFAMPRIDINE, 10MG [Suspect]
     Active Substance: DALFAMPRIDINE
     Indication: MULTIPLE SCLEROSIS
     Route: 048
     Dates: start: 20181012

REACTIONS (2)
  - Fall [None]
  - Aspiration [None]

NARRATIVE: CASE EVENT DATE: 201907
